FAERS Safety Report 8119279-8 (Version None)
Quarter: 2012Q1

REPORT INFORMATION
  Report Type: 
  Country: None (occurrence: None)
  Receive Date: 20120207
  Receipt Date: 20120125
  Transmission Date: 20120608
  Serious: No
  Sender: FDA-Public Use
  Company Number: JP-ELI_LILLY_AND_COMPANY-JP201108003076

PATIENT
  Sex: Male
  Weight: 85 kg

DRUGS (6)
  1. CYMBALTA [Suspect]
     Dosage: 60 MG, QD
     Route: 048
     Dates: start: 20110428, end: 20110831
  2. PAXIL [Concomitant]
     Indication: PANIC DISORDER
     Dosage: 40 MG, QD
     Route: 048
     Dates: start: 20080515
  3. LEXOTAN [Concomitant]
     Indication: PANIC DISORDER
     Dosage: 4 MG, QD
     Route: 048
     Dates: start: 20070110
  4. CYMBALTA [Suspect]
     Indication: DEPRESSION
     Dosage: 20 MG, QD
     Route: 048
     Dates: start: 20100701, end: 20110412
  5. CYMBALTA [Suspect]
     Dosage: 40 MG, QD
     Route: 048
     Dates: start: 20110413, end: 20110427
  6. CYMBALTA [Suspect]
     Dosage: 40 MG, QD
     Route: 048
     Dates: start: 20110901

REACTIONS (1)
  - MANIA [None]
